FAERS Safety Report 5385601-9 (Version None)
Quarter: 2007Q3

REPORT INFORMATION
  Report Type: 
  Country: None (occurrence: None)
  Receive Date: 20070710
  Receipt Date: 20060515
  Transmission Date: 20080115
  Serious: Yes (Hospitalization)
  Sender: FDA-Public Use
  Company Number: US-2005-007020

PATIENT
  Age: 36 Year
  Sex: Female
  Weight: 79.4 kg

DRUGS (3)
  1. YASMIN [Suspect]
     Indication: MENSTRUATION IRREGULAR
     Dosage: 1 TAB(S), 1X/DAY, ORAL
     Route: 048
     Dates: start: 20040823, end: 20041005
  2. DIET FORMULATIONS FOR TREATMENT OF OBESITY (^CORTISLIM^)() [Suspect]
     Indication: WEIGHT CONTROL
     Dosage: 1 TAB(S), ORAL
     Route: 048
     Dates: start: 20040701, end: 20041005
  3. DAILY MULTIVITAMIN (VITAMINS NOS) [Concomitant]

REACTIONS (1)
  - MYOCARDIAL INFARCTION [None]
